FAERS Safety Report 10267994 (Version 4)
Quarter: 2015Q3

REPORT INFORMATION
  Report Type: Report from Study
  Country: DE (occurrence: DE)
  Receive Date: 20140630
  Receipt Date: 20150909
  Transmission Date: 20151125
  Serious: Yes (Hospitalization)
  Sender: FDA-Public Use
  Company Number: DE-SA-2014SA084019

PATIENT
  Age: 52 Year
  Sex: Female

DRUGS (3)
  1. AUBAGIO [Suspect]
     Active Substance: TERIFLUNOMIDE
     Indication: MULTIPLE SCLEROSIS
     Route: 048
     Dates: start: 20140128
  2. AUBAGIO [Suspect]
     Active Substance: TERIFLUNOMIDE
     Indication: MULTIPLE SCLEROSIS
     Route: 048
     Dates: start: 20140203
  3. DARIFENACIN [Concomitant]
     Active Substance: DARIFENACIN
     Indication: BLADDER DISORDER
     Route: 048
     Dates: start: 20140227

REACTIONS (9)
  - Multiple sclerosis relapse [Recovering/Resolving]
  - Balance disorder [Recovering/Resolving]
  - Hypoaesthesia [Recovering/Resolving]
  - Hypoaesthesia [Recovered/Resolved]
  - Abdominal discomfort [Not Recovered/Not Resolved]
  - Inflammation [Unknown]
  - Dysaesthesia [Recovered/Resolved]
  - Animal bite [Unknown]
  - Dyspepsia [Not Recovered/Not Resolved]

NARRATIVE: CASE EVENT DATE: 2014
